FAERS Safety Report 8788677 (Version 7)
Quarter: 2018Q4

REPORT INFORMATION
  Report Type: Report from Study
  Country: JP (occurrence: JP)
  Receive Date: 20120916
  Receipt Date: 20181005
  Transmission Date: 20190205
  Serious: Yes (Hospitalization, Other)
  Sender: FDA-Public Use
  Company Number: PHHY2012JP079893

PATIENT
  Age: 75 Year
  Sex: Female
  Weight: 43 kg

DRUGS (9)
  1. TASIGNA [Suspect]
     Active Substance: NILOTINIB
     Dosage: 400 MG, DAILY
     Route: 048
     Dates: start: 20120607
  2. FOIPAN [Concomitant]
     Active Substance: CAMOSTAT MESYLATE
     Indication: CHRONIC MYELOID LEUKAEMIA
     Dosage: 600 MG, UNK
     Route: 048
     Dates: start: 20111209
  3. GASTER [Concomitant]
     Active Substance: FAMOTIDINE
     Indication: CHRONIC MYELOID LEUKAEMIA
     Dosage: 20 MG
     Route: 048
     Dates: start: 20120607
  4. ALFAROL [Concomitant]
     Active Substance: ALFACALCIDOL
     Indication: HYPOMAGNESAEMIA
     Dosage: 0.5 UG
     Route: 048
     Dates: start: 20111209
  5. TASIGNA [Suspect]
     Active Substance: NILOTINIB
     Dosage: 400 MG, DAILY
     Route: 048
     Dates: end: 20130517
  6. TASIGNA [Suspect]
     Active Substance: NILOTINIB
     Dosage: 800 MG, DAILY
     Route: 048
     Dates: start: 20120119, end: 20120606
  7. NAUZELIN [Concomitant]
     Active Substance: DOMPERIDONE
     Indication: CHRONIC MYELOID LEUKAEMIA
     Dosage: 20 MG, UNK
     Route: 048
     Dates: start: 20120316
  8. TASIGNA [Suspect]
     Active Substance: NILOTINIB
     Indication: CHRONIC MYELOID LEUKAEMIA
     Dosage: 800 MG, DAILY
     Route: 048
     Dates: start: 20111209, end: 20120105
  9. GASMOTIN [Concomitant]
     Active Substance: MOSAPRIDE CITRATE
     Indication: CHRONIC MYELOID LEUKAEMIA
     Dosage: 15 MG, UNK
     Route: 048
     Dates: start: 20111209, end: 20120315

REACTIONS (21)
  - Blood uric acid increased [Recovered/Resolved]
  - Platelet count decreased [Recovered/Resolved]
  - Rash generalised [Recovered/Resolved]
  - Gamma-glutamyltransferase increased [Not Recovered/Not Resolved]
  - Blood lactate dehydrogenase increased [Recovered/Resolved]
  - Blood urea increased [Recovered/Resolved]
  - Blood alkaline phosphatase increased [Not Recovered/Not Resolved]
  - Electrocardiogram QT prolonged [Unknown]
  - Anaemia [Unknown]
  - Hemiplegia [Recovering/Resolving]
  - Aspartate aminotransferase increased [Recovered/Resolved]
  - Alanine aminotransferase increased [Recovered/Resolved]
  - Blood bilirubin increased [Recovered/Resolved]
  - Cerebral infarction [Recovering/Resolving]
  - Bilirubin conjugated increased [Recovered/Resolved]
  - Rash generalised [Recovered/Resolved]
  - Blood bilirubin increased [Recovered/Resolved]
  - Aspartate aminotransferase increased [Recovered/Resolved]
  - Alanine aminotransferase increased [Recovered/Resolved]
  - Blood glucose increased [Recovered/Resolved]
  - Blood creatinine increased [Not Recovered/Not Resolved]

NARRATIVE: CASE EVENT DATE: 20111215
